FAERS Safety Report 4991458-8 (Version None)
Quarter: 2006Q2

REPORT INFORMATION
  Report Type: 
  Country: None (occurrence: None)
  Receive Date: 20060502
  Receipt Date: 20060418
  Transmission Date: 20061013
  Serious: Yes (Hospitalization)
  Sender: FDA-Public Use
  Company Number: 2006P1000276

PATIENT
  Age: 60 Year
  Sex: Female
  Weight: 66 kg

DRUGS (8)
  1. RETEPLASE (RETEPLASE) [Suspect]
     Indication: ACUTE MYOCARDIAL INFARCTION
     Dosage: IV
     Route: 042
     Dates: start: 20051222, end: 20051222
  2. REOPRO [Suspect]
     Indication: ACUTE MYOCARDIAL INFARCTION
     Dosage: IV
     Route: 042
     Dates: start: 20051222
  3. ACETYLSALICYLIC ACID SRT [Concomitant]
  4. CLOPIDOGREL [Concomitant]
  5. LANSOPRAZOLE [Concomitant]
  6. RAMIPRIL [Concomitant]
  7. BISOPROLOL [Concomitant]
  8. ATORVASTATIN CALCIUM [Concomitant]

REACTIONS (1)
  - CORONARY ARTERY DISEASE [None]
